FAERS Safety Report 12287705 (Version 2)
Quarter: 2018Q3

REPORT INFORMATION
  Report Type: Spontaneous
  Country: US (occurrence: US)
  Receive Date: 20160420
  Receipt Date: 20180711
  Transmission Date: 20181010
  Serious: Yes (Other)
  Sender: FDA-Public Use
  Company Number: US-BAYER-2016-074701

PATIENT
  Age: 28 Year
  Sex: Female
  Weight: 96.15 kg

DRUGS (1)
  1. MIRENA [Suspect]
     Active Substance: LEVONORGESTREL
     Dosage: 20 MCG/24HR, CONT
     Route: 015
     Dates: start: 2010, end: 20151111

REACTIONS (5)
  - Embedded device [None]
  - Abdominal pain lower [None]
  - Device difficult to use [None]
  - Device breakage [None]
  - Complication of device removal [None]

NARRATIVE: CASE EVENT DATE: 20151111
